FAERS Safety Report 18953250 (Version 1)
Quarter: 2021Q1

REPORT INFORMATION
  Report Type: Spontaneous
  Country: US (occurrence: US)
  Receive Date: 20210301
  Receipt Date: 20210301
  Transmission Date: 20210420
  Serious: Yes (Other)
  Sender: FDA-Public Use
  Company Number: US-GLAXOSMITHKLINE-PHBS1982AR00154

PATIENT
  Sex: Female

DRUGS (9)
  1. ZANTAC [Suspect]
     Active Substance: RANITIDINE HYDROCHLORIDE
     Indication: DYSPEPSIA
     Dosage: 900 MG TOTAL|PRESCRIPTION
     Route: 065
     Dates: start: 201002, end: 201904
  2. RANITIDINE. [Suspect]
     Active Substance: RANITIDINE
     Indication: DYSPEPSIA
     Dosage: 900 MG TOTAL|PRESCRIPTION
     Route: 065
     Dates: start: 201001, end: 201903
  3. VOLTAREN [Suspect]
     Active Substance: DICLOFENAC SODIUM
     Indication: ARTHROPATHY
     Dosage: 50 MG, UNK
     Route: 048
  4. ZANTAC [Suspect]
     Active Substance: RANITIDINE HYDROCHLORIDE
     Indication: ABDOMINAL DISCOMFORT
  5. ZANTAC [Suspect]
     Active Substance: RANITIDINE HYDROCHLORIDE
     Indication: ABDOMINAL DISCOMFORT
  6. RANITIDINE. [Suspect]
     Active Substance: RANITIDINE
     Indication: ABDOMINAL DISCOMFORT
  7. RANITIDINE. [Suspect]
     Active Substance: RANITIDINE
     Indication: ABDOMINAL DISCOMFORT
  8. ZANTAC [Suspect]
     Active Substance: RANITIDINE HYDROCHLORIDE
     Indication: DYSPEPSIA
     Dosage: 900 MG TOTAL|PRESCRIPTION
     Route: 065
     Dates: start: 201002, end: 201904
  9. RANITIDINE. [Suspect]
     Active Substance: RANITIDINE
     Indication: DYSPEPSIA
     Dosage: 900 MG TOTAL|PRESCRIPTION
     Route: 065
     Dates: start: 201001, end: 201903

REACTIONS (6)
  - Colorectal cancer [Unknown]
  - Lung neoplasm malignant [Unknown]
  - Gastric cancer [Unknown]
  - Pharyngeal swelling [Recovered/Resolved]
  - Erythema [Unknown]
  - Swelling face [Unknown]

NARRATIVE: CASE EVENT DATE: 1981
